FAERS Safety Report 16341181 (Version 2)
Quarter: 2019Q3

REPORT INFORMATION
  Report Type: Report from Study
  Country: US (occurrence: US)
  Receive Date: 20190522
  Receipt Date: 20190725
  Transmission Date: 20191004
  Serious: Yes (Hospitalization)
  Sender: FDA-Public Use
  Company Number: US-ROCHE-2318162

PATIENT
  Age: 46 Year
  Sex: Female
  Weight: 86.2 kg

DRUGS (31)
  1. DEXILANT [Concomitant]
     Active Substance: DEXLANSOPRAZOLE
     Route: 048
  2. ZANAFLEX [Concomitant]
     Active Substance: TIZANIDINE HYDROCHLORIDE
     Route: 048
  3. ATIVAN [Concomitant]
     Active Substance: LORAZEPAM
  4. PROTONIX [Concomitant]
     Active Substance: PANTOPRAZOLE SODIUM
     Route: 042
  5. OCRELIZUMAB. [Suspect]
     Active Substance: OCRELIZUMAB
     Indication: MULTIPLE SCLEROSIS
     Route: 042
     Dates: start: 20190207, end: 20190221
  6. WELLBUTRIN [Concomitant]
     Active Substance: BUPROPION HYDROCHLORIDE
     Route: 048
  7. VITAMIN D3 [Concomitant]
     Active Substance: CHOLECALCIFEROL
     Dosage: 5000 UNITS
     Route: 048
  8. TOFRANIL [Concomitant]
     Active Substance: IMIPRAMINE HYDROCHLORIDE
     Route: 048
  9. TRILEPTAL [Concomitant]
     Active Substance: OXCARBAZEPINE
     Route: 048
  10. MORPHINE [Concomitant]
     Active Substance: MORPHINE
  11. NEURONTIN [Concomitant]
     Active Substance: GABAPENTIN
     Route: 048
  12. MELATONIN [Concomitant]
     Active Substance: MELATONIN
     Route: 048
  13. ANUCORT-HC [Concomitant]
     Active Substance: HYDROCORTISONE ACETATE
     Route: 054
  14. TOFRANIL [Concomitant]
     Active Substance: IMIPRAMINE HYDROCHLORIDE
     Route: 048
  15. HEPARIN [Concomitant]
     Active Substance: HEPARIN SODIUM
     Route: 058
  16. SYMMETREL [Concomitant]
     Active Substance: AMANTADINE HYDROCHLORIDE
     Route: 048
  17. NORVASC [Concomitant]
     Active Substance: AMLODIPINE BESYLATE
     Route: 048
  18. LIORESAL [Concomitant]
     Active Substance: BACLOFEN
     Route: 048
  19. COLESTID [Concomitant]
     Active Substance: COLESTIPOL HYDROCHLORIDE
     Route: 048
  20. BENTYL [Concomitant]
     Active Substance: DICYCLOMINE HYDROCHLORIDE
     Route: 048
  21. GUAIFENESIN. [Concomitant]
     Active Substance: GUAIFENESIN
     Route: 048
  22. AVAPRO [Concomitant]
     Active Substance: IRBESARTAN
     Route: 048
  23. ZOFRAN [Concomitant]
     Active Substance: ONDANSETRON HYDROCHLORIDE
     Indication: NAUSEA
     Route: 048
  24. ZANAFLEX [Concomitant]
     Active Substance: TIZANIDINE HYDROCHLORIDE
     Route: 048
  25. ZOSYN [Concomitant]
     Active Substance: PIPERACILLIN SODIUM\TAZOBACTAM SODIUM
  26. GARLIC [ALLIUM SATIVUM] [Concomitant]
     Active Substance: GARLIC
     Route: 048
  27. IMODIUM A-D [Concomitant]
     Active Substance: LOPERAMIDE HYDROCHLORIDE
     Route: 048
  28. RESTORIL [Concomitant]
     Active Substance: TEMAZEPAM
     Route: 048
  29. LIORESAL [Concomitant]
     Active Substance: BACLOFEN
     Route: 048
  30. NEURONTIN [Concomitant]
     Active Substance: GABAPENTIN
     Route: 048
  31. SIMETHICONE (DIMETHICONE) [Concomitant]
     Active Substance: DIMETHICONE
     Indication: FLATULENCE
     Route: 048

REACTIONS (3)
  - Diabetic ketoacidosis [Recovered/Resolved]
  - Urinary tract infection [Recovered/Resolved]
  - Acute kidney injury [Recovered/Resolved]

NARRATIVE: CASE EVENT DATE: 20190329
